FAERS Safety Report 4283912-1 (Version None)
Quarter: 2004Q1

REPORT INFORMATION
  Report Type: 
  Country: None (occurrence: None)
  Receive Date: 20040130
  Receipt Date: 20040113
  Transmission Date: 20041129
  Serious: Yes (Other)
  Sender: FDA-Public Use
  Company Number: USA030740780

PATIENT
  Age: 46 Year
  Sex: Male

DRUGS (4)
  1. FORTEO [Suspect]
     Indication: OSTEOPOROSIS
     Dates: start: 20030501
  2. OXYCONTIN [Concomitant]
  3. DECADRON [Concomitant]
  4. HYDROCORTISONE [Concomitant]

REACTIONS (11)
  - ABDOMINAL TENDERNESS [None]
  - COLONIC STENOSIS [None]
  - GASTROINTESTINAL DISORDER [None]
  - INJECTION SITE ERYTHEMA [None]
  - INJECTION SITE HAEMORRHAGE [None]
  - INJECTION SITE INFLAMMATION [None]
  - INJECTION SITE MASS [None]
  - INJECTION SITE PAIN [None]
  - IRRITABLE BOWEL SYNDROME [None]
  - PHARMACEUTICAL PRODUCT COMPLAINT [None]
  - PROCEDURAL COMPLICATION [None]
